FAERS Safety Report 13557680 (Version 1)
Quarter: 2020Q3

REPORT INFORMATION
  Report Type: Report from Study
  Country: CA (occurrence: CA)
  Receive Date: 20170518
  Receipt Date: 20170518
  Transmission Date: 20201104
  Serious: Yes (Death, Hospitalization)
  Sender: FDA-Public Use
  Company Number: CA-PFIZER INC-2017180125

PATIENT
  Age: 74 Year
  Sex: Female

DRUGS (13)
  1. MEDI4736 [Suspect]
     Active Substance: DURVALUMAB
     Dosage: 1026.0MG ONCE/SINGLE ADMINISTRATION
     Route: 042
     Dates: start: 20160304, end: 20160304
  2. TREMELIMUMAB. [Suspect]
     Active Substance: TREMELIMUMAB
     Dosage: 51.0MG ONCE/SINGLE ADMINISTRATION
     Route: 042
     Dates: start: 20160301, end: 20160301
  3. TREMELIMUMAB. [Suspect]
     Active Substance: TREMELIMUMAB
     Dosage: 51.0MG ONCE/SINGLE ADMINISTRATION
     Route: 042
     Dates: start: 20160504, end: 20160504
  4. MEDI4736 [Suspect]
     Active Substance: DURVALUMAB
     Indication: NON-SMALL CELL LUNG CANCER
     Dosage: 1040.0MG ONCE/SINGLE ADMINISTRATION
     Route: 042
     Dates: start: 20160202, end: 20160202
  5. MEDI4736 [Suspect]
     Active Substance: DURVALUMAB
     Dosage: 978.0MG ONCE/SINGLE ADMINISTRATION
     Route: 042
     Dates: start: 20160530, end: 20160530
  6. MEDI4736 [Suspect]
     Active Substance: DURVALUMAB
     Dosage: 986.0MG ONCE/SINGLE ADMINISTRATION
     Route: 042
     Dates: start: 20160624, end: 20160624
  7. MEDI4736 [Suspect]
     Active Substance: DURVALUMAB
     Dosage: 976.0MG ONCE/SINGLE ADMINISTRATION
     Route: 042
     Dates: start: 20160719, end: 20160719
  8. MEDI4736 [Suspect]
     Active Substance: DURVALUMAB
     Dosage: 952.0MG ONCE/SINGLE ADMINISTRATION
     Route: 042
     Dates: start: 20160816, end: 20160816
  9. GEMCITABINE HYDROCHLORIDE. [Suspect]
     Active Substance: GEMCITABINE HYDROCHLORIDE
     Indication: NON-SMALL CELL LUNG CANCER
     Dosage: UNK
     Route: 042
     Dates: start: 20161012
  10. TREMELIMUMAB. [Suspect]
     Active Substance: TREMELIMUMAB
     Indication: NON-SMALL CELL LUNG CANCER
     Dosage: 52.0MG ONCE/SINGLE ADMINISTRATION
     Route: 042
     Dates: start: 20160202, end: 20160202
  11. MEDI4736 [Suspect]
     Active Substance: DURVALUMAB
     Dosage: 1012.0MG ONCE/SINGLE ADMINISTRATION
     Route: 042
     Dates: start: 20160301, end: 20160301
  12. MEDI4736 [Suspect]
     Active Substance: DURVALUMAB
     Dosage: 946.0MG ONCE/SINGLE ADMINISTRATION
     Route: 042
     Dates: start: 20160913, end: 20160913
  13. CARBOPLATIN. [Suspect]
     Active Substance: CARBOPLATIN
     Indication: NON-SMALL CELL LUNG CANCER
     Dosage: UNK
     Route: 042
     Dates: start: 20161012, end: 20161102

REACTIONS (1)
  - Gastroenteritis [Recovered/Resolved]

NARRATIVE: CASE EVENT DATE: 20161122
